FAERS Safety Report 7649868 (Version 3)
Quarter: 2012Q4

REPORT INFORMATION
  Report Type: 
  Country: US (occurrence: US)
  Receive Date: 20101029
  Receipt Date: 20121031
  Transmission Date: 20130627
  Serious: Yes (Hospitalization, Other)
  Sender: FDA-Public Use
  Company Number: US-ASTRAZENECA-2010SE47884

PATIENT
  Age: 62 Year
  Sex: Female
  Weight: 46.7 kg

DRUGS (14)
  1. NEXIUM [Suspect]
     Indication: GASTROOESOPHAGEAL REFLUX DISEASE
     Route: 048
  2. SEROQUEL [Suspect]
     Indication: BIPOLAR DISORDER
     Route: 048
     Dates: start: 1997
  3. SEROQUEL [Suspect]
     Indication: BIPOLAR DISORDER
     Route: 048
     Dates: start: 1997
  4. SEROQUEL [Suspect]
     Indication: BIPOLAR DISORDER
     Route: 048
     Dates: start: 1997
  5. SEROQUEL [Suspect]
     Indication: BIPOLAR DISORDER
     Route: 048
  6. SEROQUEL [Suspect]
     Indication: BIPOLAR DISORDER
     Route: 048
     Dates: start: 2008
  7. SEROQUEL [Suspect]
     Indication: BIPOLAR DISORDER
     Route: 048
  8. ATENOLOL [Concomitant]
     Indication: MIGRAINE
     Route: 048
  9. KLONOPIN [Concomitant]
  10. PROTONIX [Concomitant]
  11. CLONIDINE [Concomitant]
  12. VISTARIL [Concomitant]
  13. LORCET [Concomitant]
  14. NEURONTIN [Concomitant]
     Indication: NEURALGIA
     Route: 048

REACTIONS (20)
  - Nephrolithiasis [Unknown]
  - Dehydration [Unknown]
  - Upper respiratory tract infection [Unknown]
  - Benign renal neoplasm [Unknown]
  - Coronary artery occlusion [Unknown]
  - Heart valve incompetence [Unknown]
  - Benign neoplasm [Unknown]
  - Drug withdrawal syndrome [Unknown]
  - Aggression [Unknown]
  - Panic attack [Unknown]
  - White blood cell count increased [Unknown]
  - Anaemia [Unknown]
  - Altered state of consciousness [Unknown]
  - Bronchitis [Recovering/Resolving]
  - Neuralgia [Unknown]
  - Cough [Recovering/Resolving]
  - Insomnia [Unknown]
  - Malaise [Recovering/Resolving]
  - Restless legs syndrome [Unknown]
  - Intentional drug misuse [Unknown]
